FAERS Safety Report 8563817-8 (Version None)
Quarter: 2012Q3

REPORT INFORMATION
  Report Type: 
  Country: None (occurrence: None)
  Receive Date: 20120727
  Receipt Date: 20120727
  Transmission Date: 20120928
  Serious: Yes (Other)
  Sender: FDA-Public Use
  Company Number: None

PATIENT
  Sex: Male

DRUGS (8)
  1. OMEPRAZOLE DR 20 MG ONCE A DAY [Concomitant]
  2. ADVAIR DISKUS 250/50 [Suspect]
     Indication: ASTHMA
     Dosage: 250/50 TWICE A DAY PO
     Route: 048
  3. LIPITOR 1 A DAY 20 MG [Concomitant]
  4. LEVOBUNOLOL HCL [Suspect]
     Indication: INTRAOCULAR PRESSURE INCREASED
     Dosage: .5% TWICE A DAY SUBDERMAL
     Route: 059
  5. LORSARTHAN POTASSIUM 50 MG ONCE A DAY [Concomitant]
  6. COQ 10 FOR CRAMPS -OTC- TWICE A DAY 100 MG [Concomitant]
  7. METFORMIN 3 A DAY 500 MG [Concomitant]
  8. ASPIRIN [Concomitant]

REACTIONS (3)
  - LUNG DISORDER [None]
  - INFECTION [None]
  - ASTHMA [None]
